FAERS Safety Report 20096353 (Version 1)
Quarter: 2021Q4

REPORT INFORMATION
  Report Type: Spontaneous
  Country: US (occurrence: US)
  Receive Date: 20211122
  Receipt Date: 20211122
  Transmission Date: 20220304
  Serious: No
  Sender: FDA-Public Use
  Company Number: US-drreddys-SPO/USA/21/0143880

PATIENT
  Age: 67 Year
  Sex: Male

DRUGS (1)
  1. ZENATANE [Suspect]
     Active Substance: ISOTRETINOIN
     Indication: Product used for unknown indication
     Dosage: RMA ISSUE DATE: 13 SEPTEMBER 2021 5:13:59 PM AND 13 OCTOBER 2021 10:04:16 AM.

REACTIONS (1)
  - Adverse drug reaction [Unknown]
